FAERS Safety Report 18858351 (Version 1)
Quarter: 2021Q1

REPORT INFORMATION
  Report Type: Spontaneous
  Country: US (occurrence: US)
  Receive Date: 20210208
  Receipt Date: 20210208
  Transmission Date: 20210420
  Serious: Yes (Hospitalization, Other)
  Sender: FDA-Public Use
  Company Number: US-EPICPHARMA-US-2021EPCLIT00103

PATIENT
  Age: 69 Year
  Sex: Female

DRUGS (1)
  1. PHENYTOIN. [Suspect]
     Active Substance: PHENYTOIN
     Indication: PRODUCT USED FOR UNKNOWN INDICATION
     Route: 065

REACTIONS (11)
  - Toxicity to various agents [Unknown]
  - Gait disturbance [Recovered/Resolved]
  - Fall [Recovered/Resolved]
  - Dysarthria [Unknown]
  - Hand fracture [Unknown]
  - Vomiting [Recovered/Resolved]
  - Nystagmus [Unknown]
  - Nausea [Recovered/Resolved]
  - Cerebellar ataxia [Unknown]
  - Eyelid injury [Unknown]
  - Ataxia [Unknown]
